FAERS Safety Report 11099174 (Version 2)
Quarter: 2015Q2

REPORT INFORMATION
  Report Type: Spontaneous
  Country: TW (occurrence: TW)
  Receive Date: 20150508
  Receipt Date: 20150514
  Transmission Date: 20150821
  Serious: Yes (Hospitalization)
  Sender: FDA-Public Use
  Company Number: TW-ROCHE-1575231

PATIENT
  Age: 58 Year
  Sex: Female

DRUGS (3)
  1. METISONE [Concomitant]
     Indication: RHEUMATOID ARTHRITIS
     Route: 048
     Dates: start: 20140815
  2. ACTEMRA [Suspect]
     Active Substance: TOCILIZUMAB
     Indication: RHEUMATOID ARTHRITIS
     Dosage: 8MG/KG
     Route: 042
     Dates: start: 20131009, end: 20150130
  3. MELOXICAM. [Concomitant]
     Active Substance: MELOXICAM
     Indication: RHEUMATOID ARTHRITIS
     Route: 048
     Dates: start: 20140516

REACTIONS (1)
  - Breast cancer [Recovered/Resolved]

NARRATIVE: CASE EVENT DATE: 20150312
